FAERS Safety Report 23977487 (Version 1)
Quarter: 2024Q2

REPORT INFORMATION
  Report Type: Spontaneous
  Country: US (occurrence: US)
  Receive Date: 20240614
  Receipt Date: 20240614
  Transmission Date: 20240715
  Serious: Yes (Other)
  Sender: FDA-Public Use
  Company Number: US-FARMAPROD-202308-202402-0534

PATIENT
  Age: 60 Year
  Sex: Female
  Weight: 96.07 kg

DRUGS (14)
  1. OXERVATE [Suspect]
     Active Substance: CENEGERMIN-BKBJ
     Indication: Neurotrophic keratopathy
     Route: 047
     Dates: start: 20240215, end: 20240221
  2. ERYTHROMYCIN [Concomitant]
     Active Substance: ERYTHROMYCIN
  3. PREDNISOLONE ACETATE [Concomitant]
     Active Substance: PREDNISOLONE ACETATE
     Indication: Inflammation
     Route: 061
  4. MULTIVITAMIN 50 PLUS [Concomitant]
  5. LYRICA [Concomitant]
     Active Substance: PREGABALIN
  6. ONDANSETRON [Concomitant]
     Active Substance: ONDANSETRON
     Dosage: DISINTEGRATING
  7. METOCLOPRAMIDE HYDROCHLORIDE [Concomitant]
     Active Substance: METOCLOPRAMIDE HYDROCHLORIDE
  8. HYDROCHLOROTHIAZIDE\LOSARTAN [Concomitant]
     Active Substance: HYDROCHLOROTHIAZIDE\LOSARTAN
  9. CLONIDINE HYDROCHLORIDE [Concomitant]
     Active Substance: CLONIDINE HYDROCHLORIDE
  10. BUTALBITAL-ACETAMINOPHEN- CAFFE [Concomitant]
  11. ATROPINE\DIPHENOXYLATE [Concomitant]
     Active Substance: ATROPINE\DIPHENOXYLATE
     Dosage: 2.5-.025MG
  12. TIZANIDINE HYDROCHLORIDE [Concomitant]
     Active Substance: TIZANIDINE HYDROCHLORIDE
  13. VENLAFAXINE HCL [Concomitant]
     Active Substance: VENLAFAXINE HYDROCHLORIDE
     Dosage: EXTENDED RELEASE FOR 24 HOURS
  14. AMOXICILLIN [Concomitant]
     Active Substance: AMOXICILLIN
     Indication: Eye infection
     Dosage: IN THE LEFT EYE
     Dates: start: 20240221

REACTIONS (3)
  - Eye infection bacterial [Recovered/Resolved]
  - Eye pain [Not Recovered/Not Resolved]
  - Eye irritation [Unknown]

NARRATIVE: CASE EVENT DATE: 20240221
